FAERS Safety Report 8244861-7 (Version None)
Quarter: 2012Q1

REPORT INFORMATION
  Report Type: 
  Country: None (occurrence: None)
  Receive Date: 20120329
  Receipt Date: 20110701
  Transmission Date: 20120608
  Serious: No
  Sender: FDA-Public Use
  Company Number: US-MYLANLABS-2011S1013706

PATIENT
  Sex: Male

DRUGS (2)
  1. DIAZEPAM [Suspect]
     Indication: BACK PAIN
  2. FENTANYL-100 [Interacting]
     Indication: BACK PAIN
     Dosage: Q72H
     Route: 062
     Dates: start: 20110625

REACTIONS (3)
  - DRUG INTERACTION [None]
  - AGGRESSION [None]
  - ABNORMAL DREAMS [None]
